FAERS Safety Report 12718226 (Version 1)
Quarter: 2016Q3

REPORT INFORMATION
  Report Type: Spontaneous
  Country: US (occurrence: US)
  Receive Date: 20160906
  Receipt Date: 20160906
  Transmission Date: 20161109
  Serious: Yes (Hospitalization)
  Sender: FDA-Public Use
  Company Number: US-JNJFOC-20160903291

PATIENT
  Age: 13 Year
  Sex: Female
  Weight: 44.5 kg

DRUGS (1)
  1. USTEKINUMAB [Suspect]
     Active Substance: USTEKINUMAB
     Indication: CROHN^S DISEASE
     Dosage: HAD 6 DOSES
     Route: 058

REACTIONS (7)
  - Upper respiratory tract infection [Unknown]
  - Urinary tract infection [Unknown]
  - Drug ineffective [Unknown]
  - Weight decreased [Unknown]
  - Crohn^s disease [Unknown]
  - Off label use [Unknown]
  - Device related infection [Unknown]
